FAERS Safety Report 5504227-7 (Version None)
Quarter: 2007Q4

REPORT INFORMATION
  Report Type: 
  Country: None (occurrence: None)
  Receive Date: 20071101
  Receipt Date: 20071029
  Transmission Date: 20080405
  Serious: Yes (Disabling, Other)
  Sender: FDA-Public Use
  Company Number: FRWYE288211SEP07

PATIENT
  Sex: Female
  Weight: 50 kg

DRUGS (5)
  1. TYGACIL [Suspect]
     Indication: MYCOBACTERIUM ABSCESSUS INFECTION
     Route: 042
     Dates: start: 20070802, end: 20070919
  2. TYGACIL [Suspect]
     Indication: PNEUMONIA
  3. AMIKLIN [Suspect]
     Indication: MYCOBACTERIUM ABSCESSUS INFECTION
     Route: 042
     Dates: start: 20070802, end: 20070818
  4. AMIKLIN [Suspect]
     Indication: PNEUMONIA
     Route: 042
     Dates: start: 20070819, end: 20070910
  5. AMIKLIN [Suspect]
     Route: 042
     Dates: start: 20070911, end: 20070919

REACTIONS (16)
  - ALANINE AMINOTRANSFERASE INCREASED [None]
  - ASPARTATE AMINOTRANSFERASE INCREASED [None]
  - BALANCE DISORDER [None]
  - BLOOD ALKALINE PHOSPHATASE INCREASED [None]
  - BLOOD BILIRUBIN INCREASED [None]
  - DEPRESSION [None]
  - GAMMA-GLUTAMYLTRANSFERASE INCREASED [None]
  - GASTROINTESTINAL DISORDER [None]
  - GENERAL PHYSICAL HEALTH DETERIORATION [None]
  - INTENTIONAL DRUG MISUSE [None]
  - JAUNDICE [None]
  - OEDEMA PERIPHERAL [None]
  - RENAL IMPAIRMENT [None]
  - TACHYCARDIA [None]
  - TREMOR [None]
  - VERTIGO [None]
